FAERS Safety Report 10094237 (Version 5)
Quarter: 2014Q3

REPORT INFORMATION
  Report Type: Spontaneous
  Country: US (occurrence: US)
  Receive Date: 20140422
  Receipt Date: 20140811
  Transmission Date: 20150326
  Serious: Yes (Hospitalization)
  Sender: FDA-Public Use
  Company Number: US-BEH-2013039673

PATIENT
  Age: 45 Year
  Sex: Male
  Weight: 103 kg

DRUGS (1)
  1. ZEMAIRA [Suspect]
     Active Substance: .ALPHA.1-PROTEINASE INHIBITOR HUMAN
     Dosage: 01-APR-2014

REACTIONS (11)
  - Oropharyngeal pain [Recovered/Resolved]
  - Dyspnoea [Unknown]
  - Malaise [Unknown]
  - Liver disorder [Unknown]
  - Hepatomegaly [Unknown]
  - Arthritis [Unknown]
  - Condition aggravated [Recovered/Resolved]
  - Pain in extremity [Recovered/Resolved]
  - Malaise [Unknown]
  - Dyspnoea [Recovered/Resolved]
  - Asthenia [Unknown]

NARRATIVE: CASE EVENT DATE: 20131219
